FAERS Safety Report 9535372 (Version 1)
Quarter: 2013Q3

REPORT INFORMATION
  Report Type: Spontaneous
  Country: US (occurrence: US)
  Receive Date: 20130918
  Receipt Date: 20130918
  Transmission Date: 20140515
  Serious: Yes (Hospitalization)
  Sender: FDA-Public Use
  Company Number: US-CUBIST PHARMACEUTICALS, INC.-2013CBST000796

PATIENT
  Sex: 0

DRUGS (11)
  1. CUBICIN [Suspect]
     Indication: INFECTION
     Dosage: 6.21 MG/KG, Q8H
     Route: 042
     Dates: start: 20130804, end: 20130804
  2. CUBICIN [Suspect]
     Dosage: 465 MG, TID
     Route: 042
     Dates: start: 20130804, end: 20130804
  3. AZTREONAM [Concomitant]
     Indication: INFECTION
     Dosage: 2 G, DAILY
     Route: 042
     Dates: start: 20130720, end: 20130803
  4. AZTREONAM [Concomitant]
     Dosage: 3 G, DAILY
     Route: 042
     Dates: start: 20130803
  5. ASPIRIN [Concomitant]
     Indication: CARDIAC DISORDER
     Dosage: 325 MG, DAILY
     Route: 048
     Dates: start: 2013
  6. ATORVASTATIN [Concomitant]
     Indication: HYPERCHOLESTEROLAEMIA
     Dosage: 20 MG, DAILY
     Route: 048
  7. METOPROLOL [Concomitant]
     Indication: BLOOD PRESSURE
     Dosage: 12.5 MG, DAILY
     Route: 048
  8. PANTOPRAZOLE [Concomitant]
     Indication: ABDOMINAL DISCOMFORT
     Dosage: 40 MG, DAILY
     Route: 048
  9. FLORASTOR [Concomitant]
     Indication: PROBIOTIC THERAPY
     Dosage: 1 TABLET, BID
     Route: 048
  10. MVI [Concomitant]
     Indication: VITAMIN SUPPLEMENTATION
     Dosage: 1 TABLET, DAILY
     Route: 048
  11. FISH OIL [Concomitant]
     Indication: VITAMIN SUPPLEMENTATION
     Dosage: 1200 UNITS, DAILY
     Route: 048

REACTIONS (2)
  - Head discomfort [Recovering/Resolving]
  - Drug hypersensitivity [Unknown]
